FAERS Safety Report 9790933 (Version 1)
Quarter: 2013Q4

REPORT INFORMATION
  Report Type: Spontaneous
  Country: US (occurrence: US)
  Receive Date: 20131231
  Receipt Date: 20131231
  Transmission Date: 20140711
  Serious: Yes (Hospitalization)
  Sender: FDA-Public Use
  Company Number: US-MYLANLABS-2013S1028827

PATIENT
  Age: 73 Year
  Sex: Male

DRUGS (2)
  1. CLINDAMYCIN [Suspect]
     Indication: PNEUMONIA ASPIRATION
     Route: 042
  2. CLINDAMYCIN [Suspect]
     Indication: PNEUMONIA ASPIRATION
     Route: 048

REACTIONS (2)
  - Acute hepatic failure [Recovering/Resolving]
  - Encephalopathy [Unknown]
